FAERS Safety Report 18482640 (Version 1)
Quarter: 2020Q4

REPORT INFORMATION
  Report Type: Spontaneous
  Country: US (occurrence: US)
  Receive Date: 20201109
  Receipt Date: 20201109
  Transmission Date: 20210114
  Serious: No
  Sender: FDA-Public Use
  Company Number: US-ALLERGAN-2008071US

PATIENT
  Sex: Female
  Weight: 58.96 kg

DRUGS (1)
  1. LO LOESTRIN FE [Suspect]
     Active Substance: ETHINYL ESTRADIOL\NORETHINDRONE ACETATE
     Indication: ACNE
     Dosage: 1 DF, QHS
     Route: 065
     Dates: start: 202001

REACTIONS (1)
  - Off label use [Unknown]
